FAERS Safety Report 10587346 (Version 1)
Quarter: 2014Q4

REPORT INFORMATION
  Report Type: Spontaneous
  Country: DE (occurrence: DE)
  Receive Date: 20141117
  Receipt Date: 20141117
  Transmission Date: 20150529
  Serious: Yes (Congenital Anomaly)
  Sender: FDA-Public Use
  Company Number: GXKR2014DE004198

PATIENT

DRUGS (6)
  1. ERGENYL CHRONO [Suspect]
     Active Substance: VALPROIC ACID
     Indication: BORDERLINE PERSONALITY DISORDER
     Dosage: MATERNAL DOSE (0. - 5.5 GESTATIONAL WEEK): 1400 [MG/D] (600-0-800 MG/D) ]
     Route: 064
     Dates: start: 20140430, end: 20140609
  2. OMEPRAZOLE. [Concomitant]
     Active Substance: OMEPRAZOLE
     Indication: GASTRITIS PROPHYLAXIS
     Dosage: MATERNAL DOSE (0 -16.5 GESTATIONAL WEEK): UNKNOWN
     Route: 064
     Dates: start: 20140430, end: 20140825
  3. DOXEPIN [Suspect]
     Active Substance: DOXEPIN
     Indication: DEPRESSION
     Dosage: MATERNAL DOSE (0.-5.5 GESTATIONAL WEEK): 25 MG, TID
     Route: 064
     Dates: start: 20140430, end: 20140609
  4. TRUXAL [Suspect]
     Active Substance: CHLORPROTHIXENE
     Indication: DEPRESSION
     Dosage: MATERNAL DOSE (0.-5.5 GESTATIONAL WEEK): 25 [MG/D] AS NEEDED
     Route: 064
     Dates: start: 20140430, end: 20140609
  5. ATOSIL [Concomitant]
     Active Substance: PROMETHAZINE HYDROCHLORIDE
     Indication: DEPRESSION
     Dosage: MATERNAL DOSE (6.-16.5 GESTATIONAL WEEK): 100 [MG/D (25-25-50 MG/D) ]
     Route: 064
     Dates: start: 20140611, end: 20140825
  6. CITALOPRAM [Concomitant]
     Active Substance: CITALOPRAM HYDROBROMIDE
     Indication: DEPRESSION
     Dosage: MATERNAL DOSE (10.-16.5 GESTATIONAL WEEK): UNKNOWN
     Route: 064
     Dates: start: 20140709, end: 20140825

REACTIONS (2)
  - Talipes [Not Recovered/Not Resolved]
  - Spina bifida [Not Recovered/Not Resolved]
